FAERS Safety Report 4672911-3 (Version None)
Quarter: 2005Q2

REPORT INFORMATION
  Report Type: 
  Country: None (occurrence: None)
  Receive Date: 20050523
  Receipt Date: 20050513
  Transmission Date: 20051028
  Serious: Yes (Hospitalization)
  Sender: FDA-Public Use
  Company Number: TPA2005A00554

PATIENT
  Age: 52 Year
  Sex: Female
  Weight: 67.586 kg

DRUGS (4)
  1. ACTOS [Suspect]
     Indication: DIABETES MELLITUS NON-INSULIN-DEPENDENT
     Dosage: 30 MG 1 IN 1 D PER ORAL
     Route: 048
     Dates: start: 20031101, end: 20050506
  2. TOPROL-XL [Concomitant]
  3. LIPITOR [Concomitant]
  4. XANAX [Concomitant]

REACTIONS (6)
  - ANAL FISSURE [None]
  - DIZZINESS [None]
  - HAEMORRHAGE [None]
  - PAIN [None]
  - SOMNOLENCE [None]
  - WEIGHT INCREASED [None]
